FAERS Safety Report 14582525 (Version 1)
Quarter: 2018Q1

REPORT INFORMATION
  Report Type: Other
  Country: SE (occurrence: SE)
  Receive Date: 20180228
  Receipt Date: 20180228
  Transmission Date: 20180509
  Serious: Yes (Other)
  Sender: FDA-Public Use
  Company Number: SE-VALIDUS PHARMACEUTICALS LLC-SE-2018VAL000402

PATIENT
  Age: 77 Year
  Sex: Male

DRUGS (1)
  1. CEFOTAXIME SODIUM [Suspect]
     Active Substance: CEFOTAXIME SODIUM
     Indication: URINARY TRACT INFECTION
     Dosage: UNK
     Route: 042
     Dates: start: 20171226, end: 20171228

REACTIONS (1)
  - Skin reaction [Not Recovered/Not Resolved]

NARRATIVE: CASE EVENT DATE: 20171228
